FAERS Safety Report 8431395-X (Version None)
Quarter: 2012Q2

REPORT INFORMATION
  Report Type: 
  Country: None (occurrence: None)
  Receive Date: 20120605
  Receipt Date: 20120521
  Transmission Date: 20120825
  Serious: Yes (Hospitalization, Other)
  Sender: FDA-Public Use
  Company Number: 2012MA006623

PATIENT
  Age: 30 Year
  Sex: Female

DRUGS (3)
  1. CAPROLACTAM [Concomitant]
  2. CIMETIDINE [Suspect]
     Indication: NASOPHARYNGITIS
     Dosage: ;1X;
  3. CIMETIDINE [Suspect]
     Indication: ABDOMINAL PAIN UPPER
     Dosage: ;1X;

REACTIONS (13)
  - ALTERED STATE OF CONSCIOUSNESS [None]
  - ERYTHEMA [None]
  - PIGMENTATION DISORDER [None]
  - CONVULSION [None]
  - METABOLIC ACIDOSIS [None]
  - LETHARGY [None]
  - LEUKOCYTOSIS [None]
  - ELECTROENCEPHALOGRAM ABNORMAL [None]
  - POISONING [None]
  - VOMITING [None]
  - HYPOKALAEMIA [None]
  - EXPOSURE TO TOXIC AGENT [None]
  - DRUG INTERACTION [None]
